FAERS Safety Report 12336278 (Version 1)
Quarter: 2016Q2

REPORT INFORMATION
  Report Type: Report from Study
  Country: BR (occurrence: BR)
  Receive Date: 20160505
  Receipt Date: 20160505
  Transmission Date: 20160815
  Serious: Yes (Death, Hospitalization, Other)
  Sender: FDA-Public Use
  Company Number: BR-BRISTOL-MYERS SQUIBB COMPANY-BMS-2015-067341

PATIENT
  Sex: Female

DRUGS (1)
  1. ABATACEPT [Suspect]
     Active Substance: ABATACEPT
     Indication: RHEUMATOID ARTHRITIS
     Dosage: UNK, QMO
     Route: 042

REACTIONS (3)
  - Dementia Alzheimer^s type [Fatal]
  - Multiple organ dysfunction syndrome [Fatal]
  - Hospitalisation [Unknown]
